FAERS Safety Report 16879011 (Version 4)
Quarter: 2019Q4

REPORT INFORMATION
  Report Type: Spontaneous
  Country: ES (occurrence: ES)
  Receive Date: 20191002
  Receipt Date: 20191024
  Transmission Date: 20200122
  Serious: Yes (Death, Hospitalization)
  Sender: FDA-Public Use
  Company Number: ES-MALLINCKRODT-T201906671

PATIENT
  Age: 41 Year
  Sex: Female
  Weight: 69 kg

DRUGS (4)
  1. UVADEX [Suspect]
     Active Substance: METHOXSALEN
     Dosage: UNK, EXTRACORPOREAL
     Route: 050
     Dates: end: 20170427
  2. UVADEX [Suspect]
     Active Substance: METHOXSALEN
     Indication: CHRONIC GRAFT VERSUS HOST DISEASE
     Dosage: UNK, EXTRACORPOREAL
     Route: 050
     Dates: start: 20160531
  3. UVADEX [Suspect]
     Active Substance: METHOXSALEN
     Dosage: UNK, EXTRACORPOREAL
     Route: 050
  4. ACDA [Concomitant]
     Indication: ANTICOAGULANT THERAPY
     Dosage: UNK
     Route: 065

REACTIONS (4)
  - Cardio-respiratory arrest [Fatal]
  - Product use in unapproved indication [Unknown]
  - Atrial thrombosis [Fatal]
  - Postoperative respiratory failure [Fatal]

NARRATIVE: CASE EVENT DATE: 20160531
